FAERS Safety Report 5272962-4 (Version None)
Quarter: 2007Q1

REPORT INFORMATION
  Report Type: 
  Country: None (occurrence: None)
  Receive Date: 20070322
  Receipt Date: 20070314
  Transmission Date: 20070707
  Serious: Yes (Hospitalization, Other)
  Sender: FDA-Public Use
  Company Number: HQWYE518102MAR07

PATIENT
  Age: 83 Year
  Sex: Male

DRUGS (2)
  1. CORDARONE [Suspect]
     Indication: ATRIAL FIBRILLATION
     Route: 048
     Dates: start: 19920101, end: 20070201
  2. CORDARONE [Suspect]
     Route: 048
     Dates: start: 20070201

REACTIONS (3)
  - DEMYELINATING POLYNEUROPATHY [None]
  - LOSS OF CONSCIOUSNESS [None]
  - MYOCLONUS [None]
